FAERS Safety Report 9513320 (Version 1)
Quarter: 2013Q1

REPORT INFORMATION
  Report Type: Spontaneous
  Country: US (occurrence: None)
  Receive Date: 20130305
  Receipt Date: 20130305
  Transmission Date: 20140127
  Serious: Yes (Hospitalization, Other)
  Sender: FDA-Public Use
  Company Number: 163-21880-12042479

PATIENT
  Age: 61 Year
  Sex: Male

DRUGS (1)
  1. REVLIMID ?(LENALIDOMIDE 10 MILLIGRAM, CAPSULES [Suspect]
     Indication: PLASMA CELL MYELOMA
     Dosage: 10 MG, 1 IN 1 D, PO
     Route: 048
     Dates: start: 20120418, end: 20120501

REACTIONS (2)
  - Blindness [None]
  - Dizziness [None]
